FAERS Safety Report 17908173 (Version 2)
Quarter: 2020Q3

REPORT INFORMATION
  Report Type: Report from Study
  Country: RU (occurrence: RU)
  Receive Date: 20200617
  Receipt Date: 20200709
  Transmission Date: 20201103
  Serious: Yes (Death, Other)
  Sender: FDA-Public Use
  Company Number: NVSC2020RU167595

PATIENT
  Age: 59 Year
  Sex: Male

DRUGS (1)
  1. ILARIS [Suspect]
     Active Substance: CANAKINUMAB
     Indication: COVID-19
     Dosage: 300 MG
     Route: 065
     Dates: start: 20200506

REACTIONS (6)
  - Septic shock [Unknown]
  - COVID-19 [Fatal]
  - Acute kidney injury [Unknown]
  - Respiratory failure [Unknown]
  - Sepsis [Unknown]
  - Multiple organ dysfunction syndrome [Unknown]
